FAERS Safety Report 8852380 (Version 2)
Quarter: 2012Q4

REPORT INFORMATION
  Report Type: Spontaneous
  Country: ES (occurrence: None)
  Receive Date: 20121017
  Receipt Date: 20121026
  Transmission Date: 20130627
  Serious: Yes (Hospitalization)
  Sender: FDA-Public Use
  Company Number: 2012AP003380

PATIENT
  Age: 54 Year
  Sex: Male

DRUGS (5)
  1. METFORMIN [Suspect]
     Indication: DIABETES MELLITUS INSULIN-DEPENDENT
  2. METFORMIN [Suspect]
     Indication: CHRONIC KIDNEY DISEASE
  3. INSULIN LANTUS [Concomitant]
  4. VALSARTAN [Concomitant]
  5. AMLODIPINE (AMLODIPINE) [Concomitant]

REACTIONS (8)
  - Lactic acidosis [None]
  - Blindness transient [None]
  - Renal failure acute [None]
  - Hypoglycaemia [None]
  - Vitreous haemorrhage [None]
  - Diabetic neuropathy [None]
  - Vomiting [None]
  - Diarrhoea [None]
